FAERS Safety Report 7589183-2 (Version None)
Quarter: 2011Q3

REPORT INFORMATION
  Report Type: 
  Country: None (occurrence: None)
  Receive Date: 20110705
  Receipt Date: 20110623
  Transmission Date: 20111222
  Serious: Yes (Hospitalization, Other)
  Sender: FDA-Public Use
  Company Number: CA-JNJFOC-20100707576

PATIENT
  Sex: Female
  Weight: 88 kg

DRUGS (8)
  1. METHOTREXATE [Concomitant]
  2. FOLIC ACID [Concomitant]
  3. REMICADE [Suspect]
     Dosage: THIS WAS THE 36TH DOSE
     Route: 042
     Dates: start: 20110623
  4. HERPES MEDICATON [Concomitant]
  5. REMICADE [Suspect]
     Dosage: THIS WAS THE 33RD DOSE
     Route: 042
     Dates: start: 20110214
  6. REMICADE [Suspect]
     Indication: PSORIATIC ARTHROPATHY
     Route: 042
  7. REMICADE [Suspect]
     Route: 042
     Dates: start: 20070122, end: 20100614
  8. MULTI-VITAMINS [Concomitant]

REACTIONS (5)
  - INFUSION RELATED REACTION [None]
  - MATERNAL EXPOSURE DURING PREGNANCY [None]
  - HYPERTENSION [None]
  - ERYTHEMA [None]
  - PRURITUS [None]
